FAERS Safety Report 6713934-X (Version None)
Quarter: 2010Q2

REPORT INFORMATION
  Report Type: 
  Country: None (occurrence: None)
  Receive Date: 20100504
  Receipt Date: 20100422
  Transmission Date: 20101027
  Serious: Yes (Other)
  Sender: FDA-Public Use
  Company Number: OSCN-NO-1004L-0113

PATIENT
  Age: 58 Year
  Sex: Male

DRUGS (4)
  1. OMNISCAN [Suspect]
     Indication: DRUG USE FOR UNKNOWN INDICATION
     Dosage: NR, SINGLE DOSE; NR, SINGLE DOSE; NR, SINGLE DOSE; NR, SINGLE DOSE
     Dates: start: 20030101, end: 20030101
  2. OMNISCAN [Suspect]
     Indication: DRUG USE FOR UNKNOWN INDICATION
     Dosage: NR, SINGLE DOSE; NR, SINGLE DOSE; NR, SINGLE DOSE; NR, SINGLE DOSE
     Dates: start: 20030101, end: 20030101
  3. OMNISCAN [Suspect]
     Indication: DRUG USE FOR UNKNOWN INDICATION
     Dosage: NR, SINGLE DOSE; NR, SINGLE DOSE; NR, SINGLE DOSE; NR, SINGLE DOSE
     Dates: start: 20030101, end: 20030101
  4. OMNISCAN [Suspect]
     Indication: DRUG USE FOR UNKNOWN INDICATION
     Dosage: NR, SINGLE DOSE; NR, SINGLE DOSE; NR, SINGLE DOSE; NR, SINGLE DOSE
     Dates: start: 20040101, end: 20040101

REACTIONS (1)
  - NEPHROGENIC SYSTEMIC FIBROSIS [None]
